FAERS Safety Report 25445953 (Version 3)
Quarter: 2025Q3

REPORT INFORMATION
  Report Type: Spontaneous
  Country: US (occurrence: US)
  Receive Date: 20250617
  Receipt Date: 20250703
  Transmission Date: 20251021
  Serious: No
  Sender: SANOFI AVENTIS
  Company Number: US-SA-2025SA170804

PATIENT
  Age: 12 Month
  Sex: Male

DRUGS (4)
  1. ALPROLIX [Suspect]
     Active Substance: EFTRENONACOG ALFA
     Indication: Factor IX deficiency
     Dosage: 1200 IU, QW
     Route: 042
     Dates: start: 202501, end: 2025
  2. ALPROLIX [Suspect]
     Active Substance: EFTRENONACOG ALFA
     Indication: Factor IX deficiency
     Dosage: 1200 IU, QW
     Route: 042
     Dates: start: 202501, end: 2025
  3. ALPROLIX [Suspect]
     Active Substance: EFTRENONACOG ALFA
     Dosage: 1500 IU, QW
     Route: 042
     Dates: start: 20250627
  4. ALPROLIX [Suspect]
     Active Substance: EFTRENONACOG ALFA
     Dosage: 1500 IU, QW
     Route: 042
     Dates: start: 20250627

REACTIONS (1)
  - Coagulation factor increased [Unknown]

NARRATIVE: CASE EVENT DATE: 20250620
